FAERS Safety Report 17067204 (Version 1)
Quarter: 2019Q4

REPORT INFORMATION
  Report Type: Spontaneous
  Country: US (occurrence: US)
  Receive Date: 20191122
  Receipt Date: 20191122
  Transmission Date: 20200122
  Serious: No
  Sender: FDA-Public Use
  Company Number: US-PERRIGO-19US008465

PATIENT
  Age: 48 Year
  Sex: Female
  Weight: 58.96 kg

DRUGS (2)
  1. NICOTINE POLACRILEX [Suspect]
     Active Substance: NICOTINE
     Indication: SMOKING CESSATION THERAPY
     Dosage: 2 MG, SINGLE
     Route: 002
     Dates: start: 20190705, end: 20190705
  2. ESTROGEN NOS [Concomitant]
     Active Substance: ESTROGENS
     Indication: HORMONE LEVEL ABNORMAL
     Dosage: UNK
     Route: 065

REACTIONS (1)
  - Cough [Recovered/Resolved]

NARRATIVE: CASE EVENT DATE: 20190705
